FAERS Safety Report 5900471-5 (Version None)
Quarter: 2008Q3

REPORT INFORMATION
  Report Type: 
  Country: None (occurrence: None)
  Receive Date: 20080926
  Receipt Date: 20080918
  Transmission Date: 20090109
  Serious: Yes (Other)
  Sender: FDA-Public Use
  Company Number: JP-GENENTECH-268406

PATIENT
  Age: 57 Year
  Sex: Female

DRUGS (12)
  1. RITUXAN [Suspect]
     Indication: DIFFUSE LARGE B-CELL LYMPHOMA
     Route: 042
  2. DOXORUBICIN HCL [Concomitant]
     Indication: NON-HODGKIN'S LYMPHOMA
  3. CYCLOPHOSPHAMIDE [Concomitant]
     Indication: NON-HODGKIN'S LYMPHOMA
  4. VINCRISTINE [Concomitant]
     Indication: NON-HODGKIN'S LYMPHOMA
  5. PREDNISOLONE [Concomitant]
     Indication: NON-HODGKIN'S LYMPHOMA
  6. CYTARABINE [Concomitant]
     Indication: NON-HODGKIN'S LYMPHOMA
  7. ETOPOSIDE [Concomitant]
     Indication: NON-HODGKIN'S LYMPHOMA
  8. DEXAMETHASONE [Concomitant]
     Indication: NON-HODGKIN'S LYMPHOMA
  9. RANIMUSTINE [Concomitant]
     Indication: NON-HODGKIN'S LYMPHOMA
  10. FLUCONAZOLE [Concomitant]
     Indication: PROPHYLAXIS
  11. LEVOFLOXACIN [Concomitant]
     Indication: PROPHYLAXIS
  12. COTRIMOXAZOLE [Concomitant]
     Indication: PROPHYLAXIS

REACTIONS (3)
  - CYTOMEGALOVIRUS ANTIGEN POSITIVE [None]
  - FEBRILE NEUTROPENIA [None]
  - FUNGAEMIA [None]
